FAERS Safety Report 15594756 (Version 2)
Quarter: 2019Q1

REPORT INFORMATION
  Report Type: Spontaneous
  Country: US (occurrence: US)
  Receive Date: 20181106
  Receipt Date: 20190108
  Transmission Date: 20190417
  Serious: No
  Sender: FDA-Public Use
  Company Number: US-SA-2018SA302979

PATIENT
  Age: 55 Year
  Sex: Male

DRUGS (1)
  1. FABRAZYME [Suspect]
     Active Substance: AGALSIDASE BETA
     Indication: FABRY^S DISEASE
     Dosage: 100 MG, QOW
     Route: 041
     Dates: start: 2015

REACTIONS (1)
  - Rash [Not Recovered/Not Resolved]
